FAERS Safety Report 9276128 (Version 1)
Quarter: 2013Q2

REPORT INFORMATION
  Report Type: Spontaneous
  Country: FR (occurrence: FR)
  Receive Date: 20130507
  Receipt Date: 20130507
  Transmission Date: 20140414
  Serious: Yes (Death)
  Sender: FDA-Public Use
  Company Number: FR-PFIZER INC-2013139516

PATIENT
  Age: 45 Year
  Sex: Female

DRUGS (2)
  1. EFFEXOR LP [Suspect]
     Indication: DEPRESSION
     Dosage: 75 MG, ONE DOSAGE FORM DAILY
     Route: 048
     Dates: start: 20130405, end: 20130407
  2. LEXOMIL ROCHE [Suspect]
     Indication: DEPRESSION
     Dosage: UNK
     Route: 048
     Dates: start: 20130405, end: 20130407

REACTIONS (3)
  - Ischaemic stroke [Fatal]
  - Coma [None]
  - Iron deficiency anaemia [None]
